FAERS Safety Report 8474629-8 (Version None)
Quarter: 2012Q2

REPORT INFORMATION
  Report Type: 
  Country: None (occurrence: None)
  Receive Date: 20120628
  Receipt Date: 20120619
  Transmission Date: 20120825
  Serious: Yes (Hospitalization)
  Sender: FDA-Public Use
  Company Number: JP-AMGEN-JPNCT2012035633

PATIENT
  Age: 64 Year
  Sex: Female
  Weight: 48 kg

DRUGS (16)
  1. PANITUMUMAB [Suspect]
     Dosage: 300 MG, UNK
     Route: 041
     Dates: start: 20120111
  2. FAMOTIDINE [Concomitant]
     Dosage: UNK
     Route: 048
  3. HIRUDOID [Concomitant]
     Dosage: UNK
     Route: 062
  4. ANTEBATE [Concomitant]
     Dosage: UNK
     Route: 062
  5. PANITUMUMAB [Suspect]
     Indication: COLORECTAL CANCER
     Dosage: 300 MG, UNK
     Route: 041
     Dates: start: 20111201, end: 20111201
  6. FLUOROURACIL [Concomitant]
     Dosage: UNK UNK, Q2WK
     Route: 041
     Dates: start: 20111201
  7. ALLEGRA [Concomitant]
     Dosage: UNK
     Route: 048
  8. KYTRIL [Concomitant]
     Dosage: UNK
     Route: 048
  9. LYRICA [Concomitant]
     Dosage: UNK
     Route: 048
  10. PROMACTA [Concomitant]
     Dosage: UNK
     Route: 048
  11. LEUCOVORIN CALCIUM [Concomitant]
     Indication: COLORECTAL CANCER
     Dosage: UNK UNK, Q2WK
     Route: 041
     Dates: start: 20111201
  12. IRINOTECAN HCL [Concomitant]
     Indication: COLORECTAL CANCER
     Dosage: UNK UNK, Q2WK
     Route: 041
     Dates: start: 20111201
  13. FLUOROURACIL [Concomitant]
     Indication: COLORECTAL CANCER
     Dosage: UNK UNK, Q2WK
     Route: 041
     Dates: start: 20111201
  14. PREDNISOLONE [Concomitant]
     Dosage: UNK
     Route: 048
  15. CLARITHROMYCIN [Concomitant]
     Dosage: UNK
     Route: 048
  16. LOXONIN [Concomitant]
     Dosage: UNK
     Route: 048

REACTIONS (6)
  - FEELING HOT [None]
  - BACK PAIN [None]
  - DECREASED APPETITE [None]
  - PAIN OF SKIN [None]
  - NAUSEA [None]
  - RASH [None]
